FAERS Safety Report 13843887 (Version 4)
Quarter: 2017Q4

REPORT INFORMATION
  Report Type: Spontaneous
  Country: JP (occurrence: JP)
  Receive Date: 20170808
  Receipt Date: 20171103
  Transmission Date: 20180320
  Serious: Yes (Life-Threatening, Hospitalization, Other)
  Sender: FDA-Public Use
  Company Number: JP-ASTRAZENECA-2017SE79537

PATIENT
  Age: 17466 Day
  Sex: Male
  Weight: 78 kg

DRUGS (6)
  1. LANTUS XR [Concomitant]
     Active Substance: INSULIN GLARGINE
     Route: 058
     Dates: start: 20161003
  2. HUMALOG MIX [Concomitant]
     Active Substance: INSULIN LISPRO
     Route: 058
     Dates: start: 20081013
  3. NOVORAPID [Concomitant]
     Active Substance: INSULIN ASPART
     Route: 058
  4. CRESTOR OD [Concomitant]
     Active Substance: ROSUVASTATIN CALCIUM
     Route: 048
     Dates: start: 20170703
  5. FORXIGA [Suspect]
     Active Substance: DAPAGLIFLOZIN
     Indication: TYPE 2 DIABETES MELLITUS
     Route: 048
     Dates: start: 20160509, end: 20170719
  6. JANUVIA [Concomitant]
     Active Substance: SITAGLIPTIN PHOSPHATE
     Route: 048
     Dates: start: 20111003

REACTIONS (2)
  - Cerebral infarction [Recovered/Resolved with Sequelae]
  - Transient ischaemic attack [Unknown]

NARRATIVE: CASE EVENT DATE: 20170718
